FAERS Safety Report 10042695 (Version 1)
Quarter: 2014Q1

REPORT INFORMATION
  Report Type: Report from Study
  Country: US (occurrence: US)
  Receive Date: 20140327
  Receipt Date: 20140327
  Transmission Date: 20141002
  Serious: No
  Sender: FDA-Public Use
  Company Number: PHEH2014US006073

PATIENT
  Sex: Male

DRUGS (10)
  1. TASIGNA [Suspect]
     Indication: CHRONIC MYELOID LEUKAEMIA
     Dosage: 300 MG, DAILY
     Route: 048
     Dates: start: 20130903
  2. EPIPEN 2-PAK [Concomitant]
  3. OXYCONTIN [Concomitant]
  4. SPIRIVA [Concomitant]
  5. ADVAIR DISKUS [Concomitant]
  6. DOXYCYCLINE HYCLATE [Concomitant]
  7. POLYETHYLENE GLYCOL [Concomitant]
  8. STRATTERA [Concomitant]
  9. QUETIAPINE FUMARATE [Concomitant]
  10. PROAIR HFA [Concomitant]

REACTIONS (1)
  - Rash [Unknown]
